FAERS Safety Report 10959882 (Version 2)
Quarter: 2015Q3

REPORT INFORMATION
  Report Type: Spontaneous
  Country: ES (occurrence: ES)
  Receive Date: 20150327
  Receipt Date: 20150709
  Transmission Date: 20151125
  Serious: Yes (Hospitalization, Disabling)
  Sender: FDA-Public Use
  Company Number: ES-009507513-1503ESP011820

PATIENT
  Age: 67 Year
  Sex: Female

DRUGS (1)
  1. CELESTONE CRONODOSE [Suspect]
     Active Substance: BETAMETHASONE
     Indication: MORTON^S NEURALGIA
     Dosage: UNK, QW
     Route: 065
     Dates: start: 20150223, end: 20150309

REACTIONS (11)
  - Vascular pain [Not Recovered/Not Resolved]
  - Insomnia [Recovered/Resolved]
  - Blood glucose increased [Recovered/Resolved]
  - Overdose [Unknown]
  - Epistaxis [Recovered/Resolved]
  - Dizziness [Recovered/Resolved]
  - Asthenia [Recovered/Resolved]
  - Adverse event [Not Recovered/Not Resolved]
  - Pain in extremity [Recovered/Resolved]
  - Feeling abnormal [Recovered/Resolved]
  - Vomiting [Recovered/Resolved]

NARRATIVE: CASE EVENT DATE: 2015
